FAERS Safety Report 24468530 (Version 3)
Quarter: 2025Q2

REPORT INFORMATION
  Report Type: Spontaneous
  Country: US (occurrence: US)
  Receive Date: 20241018
  Receipt Date: 20250403
  Transmission Date: 20250716
  Serious: Yes (Other)
  Sender: SUNOVION
  Company Number: US-SUMITOMO PHARMA SWITZERLAND GMBH-2024SPA003709

PATIENT

DRUGS (1)
  1. GEMTESA [Suspect]
     Active Substance: VIBEGRON
     Route: 048

REACTIONS (5)
  - Facial operation [Unknown]
  - Bladder spasm [Unknown]
  - Bladder disorder [Unknown]
  - Urinary incontinence [Unknown]
  - Therapy interrupted [Unknown]
